FAERS Safety Report 17512378 (Version 1)
Quarter: 2020Q1

REPORT INFORMATION
  Report Type: Report from Study
  Country: DE (occurrence: DE)
  Receive Date: 20200306
  Receipt Date: 20200306
  Transmission Date: 20200409
  Serious: Yes (Hospitalization)
  Sender: FDA-Public Use
  Company Number: DE-BIOGEN-2020BI00826731

PATIENT
  Age: 18 Year

DRUGS (1)
  1. SPINRAZA [Suspect]
     Active Substance: NUSINERSEN
     Indication: SPINAL MUSCULAR ATROPHY
     Route: 037
     Dates: end: 20191111

REACTIONS (3)
  - Drug ineffective [Unknown]
  - Erythema [Unknown]
  - Dizziness [Unknown]

NARRATIVE: CASE EVENT DATE: 20191110
